FAERS Safety Report 8784659 (Version 1)
Quarter: 2012Q4

REPORT INFORMATION
  Report Type: Spontaneous
  Country: US (occurrence: None)
  Receive Date: 20120830
  Receipt Date: 20120830
  Transmission Date: 20130627
  Serious: Yes (Other)
  Sender: FDA-Public Use
  Company Number: NSR_00636_2012

PATIENT
  Age: 10 Year
  Sex: Female

DRUGS (4)
  1. LAMOTRIGINE [Suspect]
     Indication: GRAND MAL SEIZURE
  2. LAMOTRIGINE [Suspect]
     Indication: GRAND MAL SEIZURE
  3. LAMOTRIGINE [Suspect]
     Indication: GRAND MAL SEIZURE
  4. CLONAZEPAM [Concomitant]

REACTIONS (6)
  - Oculogyric crisis [None]
  - Cerebral atrophy [None]
  - Cerebellar atrophy [None]
  - Tremor [None]
  - Irritability [None]
  - Toxicity to various agents [None]
